FAERS Safety Report 13387925 (Version 1)
Quarter: 2017Q1

REPORT INFORMATION
  Report Type: Spontaneous
  Country: DE (occurrence: DE)
  Receive Date: 20170330
  Receipt Date: 20170330
  Transmission Date: 20170429
  Serious: Yes (Other)
  Sender: FDA-Public Use
  Company Number: DE-STRIDES ARCOLAB LIMITED-2017SP005297

PATIENT

DRUGS (2)
  1. CORTICOSTEROIDS [Concomitant]
     Active Substance: CORTICOSTEROID NOS
     Indication: NEPHROTIC SYNDROME
     Dosage: UNK, UNKNOWN
     Route: 065
  2. MYCOPHENOLATE MOFETIL. [Suspect]
     Active Substance: MYCOPHENOLATE MOFETIL
     Indication: NEPHROTIC SYNDROME
     Dosage: UNK, UNKNOWN
     Route: 065

REACTIONS (2)
  - Disease recurrence [Unknown]
  - Off label use [Unknown]
